FAERS Safety Report 15216038 (Version 1)
Quarter: 2018Q3

REPORT INFORMATION
  Report Type: Spontaneous
  Country: US (occurrence: US)
  Receive Date: 20180703
  Receipt Date: 20180703
  Transmission Date: 20181010
  Serious: Yes (Hospitalization, Other)
  Sender: FDA-Public Use
  Company Number: None

PATIENT
  Age: 65 Year
  Sex: Female
  Weight: 60.75 kg

DRUGS (7)
  1. CELEBREX [Concomitant]
     Active Substance: CELECOXIB
  2. PROZAC [Concomitant]
     Active Substance: FLUOXETINE HYDROCHLORIDE
  3. PROLIA [Suspect]
     Active Substance: DENOSUMAB
     Indication: OSTEOPOROSIS
     Route: 030
     Dates: start: 20150115, end: 20180301
  4. MULTI?VITAMIN [Concomitant]
     Active Substance: .ALPHA.-TOCOPHEROL ACETATE, DL-\ASCORBIC ACID\CYANOCOBALAMIN\FLUORIDE ION\FOLIC ACID\NIACIN\PYRIDOXINE\RIBOFLAVIN\THIAMINE\VITAMIN A\VITAMIN D
  5. PROLIA [Suspect]
     Active Substance: DENOSUMAB
     Indication: BONE LOSS
     Route: 030
     Dates: start: 20150115, end: 20180301
  6. SPIRALECTONE [Concomitant]
  7. CALCIUM [Concomitant]
     Active Substance: CALCIUM

REACTIONS (4)
  - Femur fracture [None]
  - Deafness [None]
  - Bone loss [None]
  - Fall [None]

NARRATIVE: CASE EVENT DATE: 20160630
